FAERS Safety Report 17878676 (Version 1)
Quarter: 2020Q2

REPORT INFORMATION
  Report Type: Spontaneous
  Country: US (occurrence: US)
  Receive Date: 20200610
  Receipt Date: 20200610
  Transmission Date: 20200714
  Serious: No
  Sender: FDA-Public Use
  Company Number: US-SPECGX-T201907752

PATIENT
  Age: 65 Year
  Sex: Female
  Weight: 91 kg

DRUGS (1)
  1. HYDROCODONE/ACETAMINOPHEN [Suspect]
     Active Substance: ACETAMINOPHEN\HYDROCODONE
     Indication: PRODUCT USED FOR UNKNOWN INDICATION
     Dosage: 4 DOSAGE FORM, QD
     Route: 048

REACTIONS (5)
  - Dyspepsia [Recovering/Resolving]
  - Pruritus [Unknown]
  - Product taste abnormal [Unknown]
  - Product quality issue [Unknown]
  - Burn oesophageal [Not Recovered/Not Resolved]

NARRATIVE: CASE EVENT DATE: 201911
